FAERS Safety Report 9969726 (Version 1)
Quarter: 2014Q1

REPORT INFORMATION
  Report Type: Spontaneous
  Country: GB (occurrence: US)
  Receive Date: 20140306
  Receipt Date: 20140306
  Transmission Date: 20141002
  Serious: No
  Sender: FDA-Public Use
  Company Number: GB-009507513-1402USA012214

PATIENT
  Sex: Female

DRUGS (24)
  1. JANUVIA [Suspect]
     Dosage: UNK
  2. VITAMINS (UNSPECIFIED) [Concomitant]
     Dosage: UNK
  3. NEURONTIN [Concomitant]
     Dosage: UNK
  4. ATENDOL [Concomitant]
     Dosage: UNK
  5. DUONEB [Concomitant]
     Dosage: UNK
  6. GLUCOTROL XL [Concomitant]
     Dosage: UNK
  7. IBUPROFEN [Concomitant]
     Dosage: UNK
  8. LASIX (FUROSEMIDE SODIUM) [Concomitant]
     Dosage: UNK
  9. METFORMIN [Concomitant]
     Dosage: UNK
  10. METOLAZONE [Concomitant]
     Dosage: UNK
  11. PAXIL [Concomitant]
     Dosage: UNK
  12. POTASSIUM (UNSPECIFIED) [Concomitant]
     Dosage: UNK
  13. ADVAIR [Concomitant]
     Dosage: UNK
  14. ATACAND [Concomitant]
  15. CHANTIX [Concomitant]
     Dosage: 1 MG, BID
     Route: 048
  16. CRESTOR [Concomitant]
     Dosage: UNK
  17. LEVEMIR FLEXPEN [Concomitant]
     Dosage: UNK
  18. PROAIR (ALBUTEROL SULFATE) [Concomitant]
     Dosage: UNK
  19. PROCARDIA XL [Concomitant]
     Dosage: UNK
  20. SPIRIVA [Concomitant]
     Dosage: UNK
  21. VENTOLIN (ALBUTEROL SULFATE) [Concomitant]
     Dosage: UNK
  22. ZANTAC [Concomitant]
     Dosage: UNK
  23. ZYRTEC [Concomitant]
     Dosage: UNK
  24. VISTARIL [Concomitant]
     Dosage: UNK

REACTIONS (1)
  - Drug hypersensitivity [Unknown]
